FAERS Safety Report 11622276 (Version 2)
Quarter: 2015Q4

REPORT INFORMATION
  Report Type: Spontaneous
  Country: US (occurrence: US)
  Receive Date: 20151013
  Receipt Date: 20151218
  Transmission Date: 20160304
  Serious: No
  Sender: FDA-Public Use
  Company Number: US-JNJFOC-20150917089

PATIENT
  Sex: Female
  Weight: 61.24 kg

DRUGS (9)
  1. MOTRIN IB [Suspect]
     Active Substance: IBUPROFEN
     Indication: HEADACHE
     Dosage: WHEN REQUIRED
     Route: 048
  2. MOTRIN IB [Suspect]
     Active Substance: IBUPROFEN
     Indication: PAIN
     Dosage: WHEN REQUIRED
     Route: 048
  3. MOTRIN IB [Suspect]
     Active Substance: IBUPROFEN
     Indication: PAIN
     Route: 048
  4. MOTRIN IB [Suspect]
     Active Substance: IBUPROFEN
     Indication: ARTHRITIS
     Dosage: 800MG EVERY 4 HOURS
     Route: 048
  5. MOTRIN IB [Suspect]
     Active Substance: IBUPROFEN
     Indication: ARTHRITIS
     Dosage: WHEN REQUIRED
     Route: 048
  6. MOTRIN IB [Suspect]
     Active Substance: IBUPROFEN
     Indication: PAIN
     Dosage: 800MG EVERY 4 HOURS
     Route: 048
  7. MOTRIN IB [Suspect]
     Active Substance: IBUPROFEN
     Indication: HEADACHE
     Route: 048
  8. MOTRIN IB [Suspect]
     Active Substance: IBUPROFEN
     Indication: HEADACHE
     Dosage: 800MG EVERY 4 HOURS
     Route: 048
  9. MOTRIN IB [Suspect]
     Active Substance: IBUPROFEN
     Indication: ARTHRITIS
     Route: 048

REACTIONS (3)
  - Oedema peripheral [Unknown]
  - Incorrect dose administered [Unknown]
  - Drug ineffective [Unknown]
